FAERS Safety Report 24069690 (Version 1)
Quarter: 2024Q3

REPORT INFORMATION
  Report Type: Report from Study
  Country: TR (occurrence: TR)
  Receive Date: 20240710
  Receipt Date: 20240710
  Transmission Date: 20241016
  Serious: No
  Sender: ROCHE
  Company Number: TR-ROCHE-3553376

PATIENT
  Age: 69 Year
  Sex: Male
  Weight: 87.0 kg

DRUGS (6)
  1. ALECTINIB [Suspect]
     Active Substance: ALECTINIB
     Indication: Lung squamous cell carcinoma metastatic
     Route: 048
     Dates: start: 20201203
  2. ALECTINIB [Suspect]
     Active Substance: ALECTINIB
     Route: 048
     Dates: start: 20210907
  3. GRANITRON [Concomitant]
     Route: 042
     Dates: start: 20230727, end: 20230728
  4. EQICEFT [Concomitant]
     Route: 042
     Dates: start: 20230727, end: 20230728
  5. PANTOPRAZOLE SODIUM [Concomitant]
     Active Substance: PANTOPRAZOLE SODIUM
     Route: 048
     Dates: start: 20230727, end: 20230728
  6. LORLATINIB [Concomitant]
     Active Substance: LORLATINIB
     Route: 042
     Dates: start: 20230718, end: 20230728

REACTIONS (1)
  - Blood lactate dehydrogenase increased [Not Recovered/Not Resolved]

NARRATIVE: CASE EVENT DATE: 20230703
